FAERS Safety Report 13788460 (Version 2)
Quarter: 2017Q4

REPORT INFORMATION
  Report Type: Spontaneous
  Country: US (occurrence: US)
  Receive Date: 20170725
  Receipt Date: 20171010
  Transmission Date: 20180320
  Serious: No
  Sender: FDA-Public Use
  Company Number: US-JNJFOC-20170622807

PATIENT
  Sex: Male

DRUGS (10)
  1. IMBRUVICA [Suspect]
     Active Substance: IBRUTINIB
     Indication: WALDENSTROM^S MACROGLOBULINAEMIA
     Route: 048
     Dates: start: 20161108, end: 20170711
  2. GLIPIZIDE. [Concomitant]
     Active Substance: GLIPIZIDE
  3. UBIQUINOL [Concomitant]
     Active Substance: UBIQUINOL
  4. FINASTERIDE. [Concomitant]
     Active Substance: FINASTERIDE
  5. HYDROCHLOROTHIAZIDE. [Concomitant]
     Active Substance: HYDROCHLOROTHIAZIDE
  6. NORCO [Concomitant]
     Active Substance: ACETAMINOPHEN\HYDROCODONE BITARTRATE
  7. GLUCOSAMINE [Concomitant]
     Active Substance: GLUCOSAMINE
  8. ALLOPURINOL. [Concomitant]
     Active Substance: ALLOPURINOL
  9. RABEPRAZOLE [Concomitant]
     Active Substance: RABEPRAZOLE
  10. BACLOFEN. [Concomitant]
     Active Substance: BACLOFEN

REACTIONS (4)
  - Aphonia [Unknown]
  - Urinary tract infection [Unknown]
  - Lung disorder [Unknown]
  - Muscle spasms [Unknown]
